FAERS Safety Report 8268578-8 (Version None)
Quarter: 2012Q1

REPORT INFORMATION
  Report Type: 
  Country: None (occurrence: None)
  Receive Date: 20120327
  Receipt Date: 20090702
  Transmission Date: 20120608
  Serious: Yes (Death)
  Sender: FDA-Public Use
  Company Number: PHEH2009US06878

PATIENT
  Sex: Male

DRUGS (6)
  1. NEXIUM [Concomitant]
  2. DILTIAZEM [Concomitant]
  3. OXYCONTIN [Concomitant]
  4. GLEEVEC [Suspect]
     Indication: GASTROINTESTINAL STROMAL TUMOUR
     Dosage: 800 MG/DAY, ORAL
     Route: 048
     Dates: start: 20081001
  5. GLEEVEC [Suspect]
     Indication: SMALL INTESTINE CARCINOMA
     Dosage: 800 MG/DAY, ORAL
     Route: 048
     Dates: start: 20081001
  6. COUMADIN [Concomitant]

REACTIONS (2)
  - NEOPLASM MALIGNANT [None]
  - METASTASIS [None]
